FAERS Safety Report 14912476 (Version 1)
Quarter: 2018Q2

REPORT INFORMATION
  Report Type: Spontaneous
  Country: RO (occurrence: BR)
  Receive Date: 20180518
  Receipt Date: 20180518
  Transmission Date: 20180711
  Serious: Yes (Death, Other)
  Sender: FDA-Public Use
  Company Number: RO-LEADIANT BIOSCIENCES INC-2018STPI000313

PATIENT
  Age: 58 Year
  Sex: Female

DRUGS (1)
  1. ABELCET [Suspect]
     Active Substance: AMPHOTERICIN B\DIMYRISTOYLPHOSPHATIDYLCHOLINE, DL-\DIMYRISTOYLPHOSPHATIDYLGLYCEROL, DL-
     Indication: INFECTION
     Dosage: 5 MG/KG, UNK

REACTIONS (5)
  - Multiple organ dysfunction syndrome [Unknown]
  - Acute respiratory distress syndrome [Fatal]
  - Haemodynamic instability [Unknown]
  - General physical health deterioration [Not Recovered/Not Resolved]
  - Klebsiella infection [Unknown]
